FAERS Safety Report 19291650 (Version 2)
Quarter: 2021Q2

REPORT INFORMATION
  Report Type: Report from Study
  Country: None (occurrence: US)
  Receive Date: 20210523
  Receipt Date: 20210618
  Transmission Date: 20210717
  Serious: Yes (Hospitalization, Other)
  Sender: FDA-Public Use
  Company Number: US-ABBVIE-21K-163-3900505-00

PATIENT
  Sex: Male
  Weight: 64.92 kg

DRUGS (1)
  1. HUMIRA [Suspect]
     Active Substance: ADALIMUMAB
     Indication: PSORIASIS
     Dosage: CITRATE FREE
     Route: 058
     Dates: start: 2017, end: 20201223

REACTIONS (5)
  - Osteoarthritis [Unknown]
  - Discomfort [Unknown]
  - Arthritis [Recovered/Resolved]
  - Dizziness [Unknown]
  - Arthritis [Recovering/Resolving]
